FAERS Safety Report 12187693 (Version 1)
Quarter: 2016Q1

REPORT INFORMATION
  Report Type: Spontaneous
  Country: US (occurrence: US)
  Receive Date: 20160317
  Receipt Date: 20160317
  Transmission Date: 20160526
  Serious: No
  Sender: FDA-Public Use
  Company Number: US-PERRIGO-15US008450

PATIENT
  Age: 69 Year
  Sex: Male
  Weight: 62.59 kg

DRUGS (9)
  1. NICOTINE POLACRILEX [Suspect]
     Active Substance: NICOTINE
     Indication: SMOKING CESSATION THERAPY
     Dosage: 4 MG, EVERY 1 TO 3 HOURS
     Route: 002
     Dates: start: 20150513, end: 20150607
  2. BENZATROPINE [Concomitant]
     Active Substance: BENZTROPINE
     Indication: SCHIZOPHRENIA
     Dosage: UNKNOWN, UNKNOWN
     Route: 065
  3. RISPERIDONE. [Concomitant]
     Active Substance: RISPERIDONE
     Indication: SCHIZOPHRENIA
     Dosage: UNKNOWN, UNKNOWN
     Route: 065
  4. OMEPRAZOLE. [Concomitant]
     Active Substance: OMEPRAZOLE
     Indication: GASTROOESOPHAGEAL REFLUX DISEASE
     Dosage: 20 MG, UNKNOWN
     Route: 048
     Dates: start: 2005
  5. VITAMINS NOS [Concomitant]
     Active Substance: VITAMINS
     Indication: SUPPLEMENTATION THERAPY
     Dosage: UNKNOWN, UNKNOWN
     Route: 048
  6. ZOLOFT [Concomitant]
     Active Substance: SERTRALINE HYDROCHLORIDE
     Indication: SCHIZOPHRENIA
     Dosage: UNKNOWN, UNKNOWN
     Route: 048
  7. NICOTINE POLACRILEX [Suspect]
     Active Substance: NICOTINE
     Dosage: 4 MG, BID
     Route: 002
     Dates: start: 20150806
  8. NICOTINE POLACRILEX [Suspect]
     Active Substance: NICOTINE
     Dosage: 4 MG, SINGLE
     Route: 048
     Dates: start: 20150813, end: 20150813
  9. LAMOTRIGINE. [Concomitant]
     Active Substance: LAMOTRIGINE
     Indication: SCHIZOPHRENIA
     Dosage: UNKNOWN, UNKNOWN
     Route: 065
     Dates: start: 2010

REACTIONS (3)
  - Dyspepsia [Unknown]
  - Incorrect dose administered [Not Recovered/Not Resolved]
  - Accidental exposure to product [Recovered/Resolved]

NARRATIVE: CASE EVENT DATE: 20150813
